FAERS Safety Report 7291264-8 (Version None)
Quarter: 2011Q1

REPORT INFORMATION
  Report Type: 
  Country: None (occurrence: None)
  Receive Date: 20110214
  Receipt Date: 20110131
  Transmission Date: 20110831
  Serious: Yes (Other)
  Sender: FDA-Public Use
  Company Number: US-MYLANLABS-2010S1023767

PATIENT
  Age: 47 Year
  Sex: Female

DRUGS (4)
  1. MOTRIN [Concomitant]
  2. LEVOTHYROXINE SODIUM [Suspect]
     Indication: HYPOTHYROIDISM
     Route: 048
     Dates: start: 20100901, end: 20101226
  3. LEVOTHYROXINE SODIUM [Suspect]
     Route: 048
     Dates: start: 20101227, end: 20101227
  4. TYLENOL [Concomitant]

REACTIONS (4)
  - RASH GENERALISED [None]
  - INCORRECT DOSE ADMINISTERED [None]
  - URTICARIA [None]
  - SWELLING FACE [None]
